FAERS Safety Report 16898479 (Version 1)
Quarter: 2019Q4

REPORT INFORMATION
  Report Type: Spontaneous
  Country: US (occurrence: US)
  Receive Date: 20190815
  Receipt Date: 20190815
  Transmission Date: 20200122
  Serious: No
  Sender: FDA-Public Use
  Company Number: None

PATIENT
  Age: 71 Year
  Sex: Male

DRUGS (1)
  1. HUMALOG [Suspect]
     Active Substance: INSULIN LISPRO
     Indication: DIABETES MELLITUS
     Route: 003
     Dates: start: 20190808, end: 20190810

REACTIONS (2)
  - Blood glucose increased [None]
  - Extra dose administered [None]

NARRATIVE: CASE EVENT DATE: 20190809
